FAERS Safety Report 18164369 (Version 1)
Quarter: 2020Q3

REPORT INFORMATION
  Report Type: Spontaneous
  Country: CN (occurrence: CN)
  Receive Date: 20200818
  Receipt Date: 20200818
  Transmission Date: 20201103
  Serious: Yes (Other)
  Sender: FDA-Public Use
  Company Number: CN-SA-2020SA213595

PATIENT

DRUGS (2)
  1. ELOXATIN [Suspect]
     Active Substance: OXALIPLATIN
     Indication: GASTRIC CANCER
     Dosage: 120 MG, QD
     Route: 041
     Dates: start: 20200725, end: 20200725
  2. GLUCOSE [Concomitant]
     Active Substance: DEXTROSE
     Indication: GASTRIC CANCER
     Dosage: 250 ML, QD
     Route: 041
     Dates: start: 20200725, end: 20200725

REACTIONS (6)
  - Vomiting [Recovering/Resolving]
  - Diarrhoea [Recovering/Resolving]
  - Swelling [Recovering/Resolving]
  - Erythema [Recovering/Resolving]
  - Pruritus [Recovering/Resolving]
  - Abdominal pain [Recovering/Resolving]

NARRATIVE: CASE EVENT DATE: 20200725
